FAERS Safety Report 12969418 (Version 1)
Quarter: 2016Q4

REPORT INFORMATION
  Report Type: Spontaneous
  Country: GB (occurrence: GB)
  Receive Date: 20161123
  Receipt Date: 20161123
  Transmission Date: 20170207
  Serious: Yes (Other)
  Sender: FDA-Public Use
  Company Number: GB-MYLANLABS-2016M1050091

PATIENT

DRUGS (14)
  1. LERCANIDIPINE HYDROCHLORIDE [Concomitant]
     Active Substance: LERCANIDIPINE HYDROCHLORIDE
     Dosage: 1 DF, QD
     Dates: start: 20150610, end: 20160915
  2. MONTELUKAST [Concomitant]
     Active Substance: MONTELUKAST SODIUM
     Dosage: 1 DF, QD (NOCTE)
     Dates: start: 20150415, end: 20160915
  3. OLOPATADINE [Concomitant]
     Active Substance: OLOPATADINE
     Dosage: UNK (THREE TIMES DAILY TO EACH EYE)
     Route: 050
     Dates: start: 20160921, end: 20161019
  4. QUININE [Concomitant]
     Active Substance: QUININE
     Dosage: 1 DF, QD (NOCTE)
     Dates: start: 20160929
  5. DOXAZOSIN [Suspect]
     Active Substance: DOXAZOSIN\DOXAZOSIN MESYLATE
     Dosage: UNK
     Dates: start: 20160727
  6. LOPRAZOLAM [Concomitant]
     Active Substance: LOPRAZOLAM
     Dosage: 0.5 DF, QD (NOCTE)
     Dates: start: 20141218, end: 20160915
  7. CITALOPRAM [Concomitant]
     Active Substance: CITALOPRAM HYDROBROMIDE
     Dosage: 1 DF, QD
     Dates: start: 20160412
  8. CLOTRIMAZOLE. [Concomitant]
     Active Substance: CLOTRIMAZOLE
     Dosage: UNK (APPLY 2-3 TIMES/DAY)
     Dates: start: 20161013, end: 20161014
  9. DERMOL                             /00337102/ [Concomitant]
     Active Substance: CLOBETASOL PROPIONATE
     Dosage: UNK (USE AS DIRECTED)
     Dates: start: 20160223
  10. BENDROFLUMETHIAZIDE [Concomitant]
     Active Substance: BENDROFLUMETHIAZIDE
     Dosage: 1 DF, QD (MORNING)
     Dates: start: 20150708
  11. DIAZEPAM. [Concomitant]
     Active Substance: DIAZEPAM
     Dosage: 1 DF, UNK
     Dates: start: 20161013
  12. FEXOFENADINE [Concomitant]
     Active Substance: FEXOFENADINE\FEXOFENADINE HYDROCHLORIDE
     Dosage: UNK (TAKE ONE OR TWO DAILY)
     Dates: start: 20160223
  13. TRIMETHOPRIM. [Concomitant]
     Active Substance: TRIMETHOPRIM
     Dosage: 1 DF, BID
     Dates: start: 20160825, end: 20160826
  14. DEPO-MEDRONE [Concomitant]
     Active Substance: METHYLPREDNISOLONE
     Dosage: UNK (USE AS DIRECTED)
     Dates: start: 20131114, end: 20160920

REACTIONS (2)
  - Abdominal distension [Unknown]
  - Joint swelling [Unknown]

NARRATIVE: CASE EVENT DATE: 20161107
